FAERS Safety Report 9495150 (Version 3)
Quarter: 2014Q2

REPORT INFORMATION
  Report Type: Spontaneous
  Country: JP (occurrence: JP)
  Receive Date: 20130903
  Receipt Date: 20140430
  Transmission Date: 20141212
  Serious: Yes (Hospitalization, Other)
  Sender: FDA-Public Use
  Company Number: JP-ACTELION-A-JP2009-31789

PATIENT
  Age: 78 Year
  Sex: Male
  Weight: 62 kg

DRUGS (11)
  1. TRACLEER [Suspect]
     Indication: PULMONARY ARTERIAL HYPERTENSION
     Dosage: 125 MG, BID
     Route: 048
     Dates: start: 20091120, end: 20091217
  2. TRACLEER [Suspect]
     Dosage: 62.5 MG, QD
     Route: 048
     Dates: start: 20091016, end: 20091019
  3. TRACLEER [Suspect]
     Dosage: 62.5 MG, BID
     Route: 048
     Dates: start: 20091020, end: 20091112
  4. TRACLEER [Suspect]
     Dosage: 62.5 MG, TID
     Route: 048
     Dates: start: 20091113, end: 20091119
  5. TRACLEER [Suspect]
     Dosage: 62.5 MG, QD
     Route: 048
     Dates: start: 20100104, end: 20100109
  6. WARFARIN POTASSIUM [Suspect]
     Dates: end: 200912
  7. BERAPROST SODIUM [Concomitant]
  8. SILDENAFIL [Concomitant]
  9. IMIDAPRIL [Concomitant]
  10. SPIRONOLACTONE [Concomitant]
  11. OXYGEN [Concomitant]

REACTIONS (6)
  - Liver function test abnormal [Recovering/Resolving]
  - Aspartate aminotransferase increased [Recovering/Resolving]
  - Alanine aminotransferase increased [Recovering/Resolving]
  - Blood bilirubin increased [Recovering/Resolving]
  - Blood lactate dehydrogenase increased [Recovering/Resolving]
  - Drug interaction [Recovering/Resolving]
